FAERS Safety Report 20634388 (Version 1)
Quarter: 2022Q1

REPORT INFORMATION
  Report Type: Spontaneous
  Country: US (occurrence: US)
  Receive Date: 20220325
  Receipt Date: 20220325
  Transmission Date: 20220423
  Serious: No
  Sender: FDA-Public Use
  Company Number: US-JNJFOC-20220340250

PATIENT
  Sex: Female
  Weight: 54.480 kg

DRUGS (1)
  1. INVEGA [Suspect]
     Active Substance: PALIPERIDONE
     Indication: Schizophrenia
     Route: 048

REACTIONS (6)
  - Weight increased [Not Recovered/Not Resolved]
  - Breast enlargement [Unknown]
  - General symptom [Unknown]
  - Dizziness [Unknown]
  - Somnolence [Unknown]
  - Increased appetite [Unknown]
